FAERS Safety Report 11615367 (Version 3)
Quarter: 2020Q1

REPORT INFORMATION
  Report Type: Report from Study
  Country: TW (occurrence: TW)
  Receive Date: 20151009
  Receipt Date: 20200121
  Transmission Date: 20200409
  Serious: No
  Sender: FDA-Public Use
  Company Number: PHHY2015TW121846

PATIENT
  Age: 61 Year
  Sex: Female

DRUGS (16)
  1. CHLORPHENAMINE [Concomitant]
     Active Substance: CHLORPHENIRAMINE MALEATE
     Indication: PROPHYLAXIS
     Dosage: 5 MG
     Route: 042
     Dates: start: 20130727, end: 20130727
  2. CHLORPHENAMINE [Concomitant]
     Active Substance: CHLORPHENIRAMINE MALEATE
     Dosage: 5 MG
     Route: 042
     Dates: start: 20130811, end: 20130811
  3. CHLORPHENAMINE [Concomitant]
     Active Substance: CHLORPHENIRAMINE MALEATE
     Dosage: 5 MG
     Route: 042
     Dates: start: 20130819, end: 20130819
  4. TASIGNA [Suspect]
     Active Substance: NILOTINIB
     Dosage: 300 OT, UNK
     Route: 048
     Dates: start: 20130506, end: 20130512
  5. CHLORPHENAMINE [Concomitant]
     Active Substance: CHLORPHENIRAMINE MALEATE
     Dosage: 5 MG
     Route: 042
     Dates: start: 20130807, end: 20130807
  6. HYDROCORTISONE. [Concomitant]
     Active Substance: HYDROCORTISONE
     Indication: PROPHYLAXIS
     Dosage: 100 MG, UNK
     Route: 042
     Dates: start: 20130727, end: 20130727
  7. FLUMETHOLON [Concomitant]
     Active Substance: FLUOROMETHOLONE
     Indication: VITREOUS HAEMORRHAGE
     Dosage: UNK
     Route: 047
     Dates: start: 20130408
  8. TASIGNA [Suspect]
     Active Substance: NILOTINIB
     Dosage: 600 OT
     Route: 048
     Dates: start: 20130513, end: 20130702
  9. CHLORPHENAMINE [Concomitant]
     Active Substance: CHLORPHENIRAMINE MALEATE
     Dosage: 5 MG
     Route: 042
     Dates: start: 20130808, end: 20130808
  10. CHLORPHENAMINE [Concomitant]
     Active Substance: CHLORPHENIRAMINE MALEATE
     Dosage: 5 MG
     Route: 042
     Dates: start: 20130817, end: 20130817
  11. TASIGNA [Suspect]
     Active Substance: NILOTINIB
     Indication: CHRONIC MYELOID LEUKAEMIA
     Dosage: 600 OT
     Route: 048
     Dates: start: 20130306, end: 20130401
  12. CHLORPHENAMINE [Concomitant]
     Active Substance: CHLORPHENIRAMINE MALEATE
     Dosage: 5 MG
     Route: 042
     Dates: start: 20130818, end: 20130818
  13. GENTAMYCEN [Concomitant]
     Active Substance: GENTAMICIN SULFATE
     Indication: VITREOUS HAEMORRHAGE
     Dosage: UNK
     Route: 047
     Dates: start: 20130408
  14. TASIGNA [Suspect]
     Active Substance: NILOTINIB
     Dosage: 300 OT, UNK
     Route: 048
     Dates: start: 20130703, end: 20130716
  15. CHLORPHENAMINE [Concomitant]
     Active Substance: CHLORPHENIRAMINE MALEATE
     Dosage: 5 MG
     Route: 042
     Dates: start: 20130804, end: 20130804
  16. CHLORPHENAMINE [Concomitant]
     Active Substance: CHLORPHENIRAMINE MALEATE
     Dosage: 5 MG
     Route: 042
     Dates: start: 20130810, end: 20130810

REACTIONS (2)
  - Pleural effusion [Not Recovered/Not Resolved]
  - Upper respiratory tract infection [Recovered/Resolved]

NARRATIVE: CASE EVENT DATE: 20130727
